FAERS Safety Report 6601729-7 (Version None)
Quarter: 2010Q1

REPORT INFORMATION
  Report Type: 
  Country: None (occurrence: None)
  Receive Date: 20100225
  Receipt Date: 20100216
  Transmission Date: 20100710
  Serious: Yes (Hospitalization)
  Sender: FDA-Public Use
  Company Number: US-ABBOTT-09P-163-0614743-00

PATIENT
  Age: 48 Year
  Sex: Female

DRUGS (3)
  1. DEPAKOTE [Suspect]
     Indication: CONVULSION
  2. PROMETHAZINE [Concomitant]
     Indication: DRUG USE FOR UNKNOWN INDICATION
  3. LORAZEPAM [Concomitant]
     Indication: DRUG USE FOR UNKNOWN INDICATION

REACTIONS (4)
  - COUGH [None]
  - DYSPNOEA [None]
  - EOSINOPHIL COUNT INCREASED [None]
  - PULMONARY EOSINOPHILIA [None]
